FAERS Safety Report 4929203-4 (Version None)
Quarter: 2006Q1

REPORT INFORMATION
  Report Type: 
  Country: None (occurrence: None)
  Receive Date: 20060301
  Receipt Date: 20050203
  Transmission Date: 20060701
  Serious: Yes (Death, Hospitalization, Disabling)
  Sender: FDA-Public Use
  Company Number: US-MERCK-0502USA00535

PATIENT
  Age: 75 Year
  Sex: Female
  Weight: 62 kg

DRUGS (2)
  1. VIOXX [Suspect]
     Indication: RHEUMATOID ARTHRITIS
     Route: 048
     Dates: start: 20001101, end: 20020101
  2. VIOXX [Suspect]
     Route: 048
     Dates: start: 20010201, end: 20020101

REACTIONS (3)
  - ASPIRATION [None]
  - EYE PAIN [None]
  - ISCHAEMIC STROKE [None]
